FAERS Safety Report 15189597 (Version 1)
Quarter: 2018Q3

REPORT INFORMATION
  Report Type: Spontaneous
  Country: US (occurrence: US)
  Receive Date: 20180724
  Receipt Date: 20180724
  Transmission Date: 20181010
  Serious: No
  Sender: FDA-Public Use
  Company Number: US-ASTRAZENECA-2018SE83744

PATIENT
  Age: 15568 Day
  Sex: Female
  Weight: 76.2 kg

DRUGS (5)
  1. TOPAMAX [Concomitant]
     Active Substance: TOPIRAMATE
     Indication: MIGRAINE
     Route: 048
     Dates: start: 2008
  2. MONTELUKAST [Concomitant]
     Active Substance: MONTELUKAST SODIUM
     Indication: ASTHMA
     Route: 048
  3. CLARITIN OTC [Concomitant]
     Indication: MULTIPLE ALLERGIES
     Route: 048
     Dates: start: 2015
  4. CRESTOR [Suspect]
     Active Substance: ROSUVASTATIN CALCIUM
     Indication: BLOOD CHOLESTEROL INCREASED
     Dosage: GENERIC
     Route: 048
     Dates: start: 20180327
  5. GENERIC FIORICET [Concomitant]
     Indication: MIGRAINE
     Dosage: AS REQUIRED
     Route: 048
     Dates: start: 2008

REACTIONS (4)
  - Mass [Not Recovered/Not Resolved]
  - Dyspepsia [Unknown]
  - Pruritus [Not Recovered/Not Resolved]
  - Reflux gastritis [Unknown]

NARRATIVE: CASE EVENT DATE: 20180615
